FAERS Safety Report 24137861 (Version 1)
Quarter: 2024Q3

REPORT INFORMATION
  Report Type: Spontaneous
  Country: US (occurrence: None)
  Receive Date: 20240725
  Receipt Date: 20240725
  Transmission Date: 20241017
  Serious: No
  Sender: Public
  Company Number: None

PATIENT
  Age: 55 Year
  Sex: Female
  Weight: 61.65 kg

DRUGS (1)
  1. FLONASE ALLERGY RELIEF [Suspect]
     Active Substance: FLUTICASONE PROPIONATE
     Indication: Nasal congestion
     Dosage: OTHER QUANTITY : 2 SPRAY(S);?FREQUENCY : DAILY;?
     Route: 055
     Dates: start: 20240724

REACTIONS (2)
  - Insomnia [None]
  - Initial insomnia [None]

NARRATIVE: CASE EVENT DATE: 20240724
